FAERS Safety Report 10505734 (Version 1)
Quarter: 2014Q4

REPORT INFORMATION
  Report Type: Spontaneous
  Country: CA (occurrence: CA)
  Receive Date: 20141008
  Receipt Date: 20141008
  Transmission Date: 20150528
  Serious: Yes (Other)
  Sender: FDA-Public Use
  Company Number: CA-PFIZER INC-2014273510

PATIENT
  Sex: Female

DRUGS (2)
  1. CELEBREX [Suspect]
     Active Substance: CELECOXIB
     Dosage: UNK
  2. METFORMIN [Concomitant]
     Active Substance: METFORMIN HYDROCHLORIDE
     Dosage: UNK

REACTIONS (1)
  - Type 2 diabetes mellitus [Not Recovered/Not Resolved]
